FAERS Safety Report 9732844 (Version 2)
Quarter: 2013Q4

REPORT INFORMATION
  Report Type: Report from Study
  Country: US (occurrence: US)
  Receive Date: 20131205
  Receipt Date: 20131205
  Transmission Date: 20140711
  Serious: Yes (Other)
  Sender: FDA-Public Use
  Company Number: US-BRISTOL-MYERS SQUIBB COMPANY-18766485

PATIENT
  Age: 37 Year
  Sex: Female
  Weight: 45 kg

DRUGS (1)
  1. IPILIMUMAB [Suspect]
     Indication: MALIGNANT MELANOMA
     Dosage: INDU:Q3 WEEKS*4DOSES?MAIN:Q12 WEEKS ON WEEKS 24,36,48,60?LAST ADMIN:17/1/13?TOTL DOSE:135MG
     Route: 042
     Dates: start: 20121227

REACTIONS (2)
  - Colitis [Recovered/Resolved]
  - Lipase increased [Unknown]
